FAERS Safety Report 21452311 (Version 2)
Quarter: 2022Q4

REPORT INFORMATION
  Report Type: Report from Study
  Country: AU (occurrence: AU)
  Receive Date: 20221013
  Receipt Date: 20221025
  Transmission Date: 20230113
  Serious: Yes (Hospitalization)
  Sender: FDA-Public Use
  Company Number: AU-PFIZER INC-PV202200076652

PATIENT
  Age: 69 Year
  Sex: Female
  Weight: 94.5 kg

DRUGS (24)
  1. CRIZOTINIB [Suspect]
     Active Substance: CRIZOTINIB
     Indication: Non-small cell lung cancer metastatic
     Dosage: 250 MG, 2X/DAY
     Route: 048
     Dates: start: 20220908, end: 20221003
  2. LORLATINIB [Suspect]
     Active Substance: LORLATINIB
     Indication: Non-small cell lung cancer metastatic
     Dosage: 100 MG, DAILY
     Route: 048
     Dates: start: 20220616, end: 20220909
  3. LORLATINIB [Suspect]
     Active Substance: LORLATINIB
     Dosage: 100 MG, DAILY
     Route: 048
     Dates: start: 20220616, end: 20220809
  4. SPIRONOLACTONE [Suspect]
     Active Substance: SPIRONOLACTONE
     Indication: Hypertension
     Dosage: 25 MG, DAILY
     Route: 048
     Dates: start: 20220817, end: 20221004
  5. ALECTINIB [Concomitant]
     Active Substance: ALECTINIB
     Indication: Non-small cell lung cancer
     Dosage: 600 MG, 2X/DAY
     Route: 048
     Dates: start: 20200918, end: 20220611
  6. SIMVASTATIN [Concomitant]
     Active Substance: SIMVASTATIN
     Indication: Blood cholesterol increased
     Dosage: 20 MG, DAILY
     Route: 048
     Dates: start: 2003
  7. ENALAPRIL [Concomitant]
     Active Substance: ENALAPRIL
     Indication: Hypertension
     Dosage: 20 MG, DAILY
     Route: 048
     Dates: start: 1997, end: 20221004
  8. DOCUSATE SODIUM\SENNOSIDES A AND B [Concomitant]
     Active Substance: DOCUSATE SODIUM\SENNOSIDES A AND B
     Indication: Constipation
     Dosage: 2 TABLETS, AS NEEDED
     Route: 048
     Dates: start: 2020
  9. LEVOTHYROXINE [Concomitant]
     Active Substance: LEVOTHYROXINE
     Indication: Hypothyroidism
     Dosage: 75 UG MON,TUES,WED,THURS
     Route: 048
     Dates: start: 2012
  10. LEVOTHYROXINE [Concomitant]
     Active Substance: LEVOTHYROXINE
     Dosage: 100UG FRI,SAT
     Route: 048
     Dates: start: 2012
  11. LOSEC [Concomitant]
     Active Substance: OMEPRAZOLE
     Indication: Gastrooesophageal reflux prophylaxis
     Dosage: 20 MG, AS NEEDED
     Route: 048
     Dates: start: 2012
  12. ACETAMINOPHEN [Concomitant]
     Active Substance: ACETAMINOPHEN
     Indication: Analgesic therapy
     Dosage: 1000 MG FOUR TIMES DAILY AS NEEDED
     Route: 048
     Dates: start: 202205
  13. FEFOL [FERROUS SULFATE EXSICCATED;FOLIC ACID] [Concomitant]
     Indication: Vitamin supplementation
     Dosage: 270/300UG 3 TIMES/WEEK
     Route: 048
     Dates: start: 202201
  14. OSTELIN VITAMIN D3 [Concomitant]
     Indication: Vitamin supplementation
     Dosage: 1000 IU 3 TIMES/WEEK
     Route: 048
     Dates: start: 202203
  15. BETAMETHASONE VALERATE [Concomitant]
     Active Substance: BETAMETHASONE VALERATE
     Indication: Dyspnoea
     Dosage: 0.02 %, AS NEEDED
     Route: 061
     Dates: start: 20220501
  16. PANADOL [Concomitant]
     Active Substance: ACETAMINOPHEN
     Indication: Arthralgia
     Dosage: 1000 MG, AS NEEDED
     Route: 048
     Dates: start: 202205
  17. ZYRTEC [Concomitant]
     Active Substance: CETIRIZINE HYDROCHLORIDE
     Indication: Urticaria
     Dosage: 10 MG, DAILY
     Route: 048
     Dates: start: 2020, end: 20220630
  18. LORATADINE [Concomitant]
     Active Substance: LORATADINE
     Indication: Urticaria
     Dosage: 10 MG, DAILY
     Route: 048
     Dates: start: 20220630
  19. HYDROCHLOROTHIAZIDE [Concomitant]
     Active Substance: HYDROCHLOROTHIAZIDE
     Indication: Hypertension
     Dosage: 12.5 MG, DAILY
     Route: 048
     Dates: start: 20220630, end: 20220719
  20. ACETAMINOPHEN\CODEINE PHOSPHATE\DOXYLAMINE SUCCINATE [Concomitant]
     Active Substance: ACETAMINOPHEN\CODEINE PHOSPHATE\DOXYLAMINE SUCCINATE
     Indication: Arthralgia
     Dosage: 1 DF, AS NEEDED
     Route: 048
     Dates: start: 20220803, end: 20220803
  21. AMLODIPINE [Concomitant]
     Active Substance: AMLODIPINE BESYLATE
     Indication: Hypertension
     Dosage: 5 MG, DAILY
     Route: 048
     Dates: start: 20220720, end: 20220817
  22. CELECOXIB [Concomitant]
     Active Substance: CELECOXIB
     Indication: Arthralgia
     Dosage: 100 MG, AS NEEDED
     Route: 048
     Dates: start: 20220804
  23. SYMBICORT [Concomitant]
     Active Substance: BUDESONIDE\FORMOTEROL FUMARATE DIHYDRATE
     Indication: Dyspnoea
     Dosage: 1 DF, 2X/DAY
     Route: 055
     Dates: start: 202209, end: 20221004
  24. FLUTICASONE PROPIONATE\SALMETEROL XINAFOATE [Concomitant]
     Active Substance: FLUTICASONE PROPIONATE\SALMETEROL XINAFOATE
     Indication: Dyspnoea
     Dosage: 500 MCG/50 MCG AS NEEDED
     Route: 055
     Dates: start: 2016

REACTIONS (1)
  - Hyponatraemia [Recovered/Resolved]

NARRATIVE: CASE EVENT DATE: 20221004
